FAERS Safety Report 9760318 (Version 2)
Quarter: 2014Q1

REPORT INFORMATION
  Report Type: Spontaneous
  Country: DE (occurrence: DE)
  Receive Date: 20131216
  Receipt Date: 20140217
  Transmission Date: 20141002
  Serious: Yes (Hospitalization)
  Sender: FDA-Public Use
  Company Number: DE-GLAXOSMITHKLINE-D0082171A

PATIENT
  Age: 44 Year
  Sex: Male

DRUGS (3)
  1. REQUIP-MODUTAB [Suspect]
     Indication: PARKINSON^S DISEASE
     Dosage: 16MG IN THE MORNING
     Route: 048
     Dates: start: 20121107
  2. AZILECT [Concomitant]
     Indication: PARKINSON^S DISEASE
     Dosage: 1MG PER DAY
     Route: 048
     Dates: start: 20090824
  3. PK-MERZ [Concomitant]
     Indication: PARKINSON^S DISEASE
     Dosage: 150MG TWICE PER DAY
     Route: 048
     Dates: start: 20100809

REACTIONS (2)
  - Cardiac valve disease [Unknown]
  - Myocardial fibrosis [Unknown]
